FAERS Safety Report 8534151-7 (Version None)
Quarter: 2012Q3

REPORT INFORMATION
  Report Type: 
  Country: None (occurrence: None)
  Receive Date: 20120724
  Receipt Date: 20120709
  Transmission Date: 20120928
  Serious: Yes (Other)
  Sender: FDA-Public Use
  Company Number: IN-WATSON-2012-12282

PATIENT
  Age: 50 Year
  Sex: Male

DRUGS (1)
  1. PREDNISOLONE [Suspect]
     Indication: IMMUNOSUPPRESSION
     Dosage: 320 MG, DAILY
     Route: 065
     Dates: start: 20100901

REACTIONS (2)
  - OSTEOPOROSIS [None]
  - OSTEOPOROTIC FRACTURE [None]
